FAERS Safety Report 10090236 (Version 1)
Quarter: 2014Q2

REPORT INFORMATION
  Report Type: Spontaneous
  Country: US (occurrence: US)
  Receive Date: 20140421
  Receipt Date: 20140421
  Transmission Date: 20141212
  Serious: No
  Sender: FDA-Public Use
  Company Number: US-TEVA-476328USA

PATIENT
  Age: 57 Year
  Sex: Male

DRUGS (2)
  1. NUVIGIL [Suspect]
     Indication: POSTURAL ORTHOSTATIC TACHYCARDIA SYNDROME
     Dates: start: 20140327
  2. NUVIGIL [Suspect]
     Indication: FATIGUE

REACTIONS (4)
  - Feeling jittery [Recovered/Resolved]
  - Mood altered [Recovered/Resolved]
  - Agitation [Recovered/Resolved]
  - Off label use [Unknown]
